FAERS Safety Report 6562484-2 (Version None)
Quarter: 2010Q1

REPORT INFORMATION
  Report Type: 
  Country: None (occurrence: None)
  Receive Date: 20100130
  Receipt Date: 20091109
  Transmission Date: 20100710
  Serious: No
  Sender: FDA-Public Use
  Company Number: US-ABBOTT-09P-163-0608349-00

PATIENT
  Sex: Female
  Weight: 73.548 kg

DRUGS (3)
  1. HUMIRA [Suspect]
     Indication: RHEUMATOID ARTHRITIS
     Route: 058
     Dates: start: 20060101, end: 20091109
  2. XANAX [Concomitant]
     Indication: SLEEP DISORDER THERAPY
     Dosage: 1 IN 1 DAY AT BEDTIME
  3. ATENOLOL [Concomitant]
     Indication: HYPERTENSION
     Dosage: 50/25MG

REACTIONS (5)
  - BLISTER [None]
  - PARAESTHESIA [None]
  - PRURITUS [None]
  - RASH [None]
  - SKIN DISCOLOURATION [None]
